FAERS Safety Report 20673039 (Version 3)
Quarter: 2023Q2

REPORT INFORMATION
  Report Type: Spontaneous
  Country: AU (occurrence: AU)
  Receive Date: 20220405
  Receipt Date: 20230512
  Transmission Date: 20230721
  Serious: Yes (Other)
  Sender: FDA-Public Use
  Company Number: AU-BRISTOL-MYERS SQUIBB COMPANY-2022-014484

PATIENT
  Age: 66 Year
  Sex: Female
  Weight: 128 kg

DRUGS (3)
  1. ELIQUIS [Interacting]
     Active Substance: APIXABAN
     Indication: Product used for unknown indication
     Dosage: DAILY FOR ANTI COAGULANT
     Route: 048
  2. FLECAINIDE ACETATE [Suspect]
     Active Substance: FLECAINIDE ACETATE
     Indication: Atrial fibrillation
     Route: 048
  3. ASTRAZENECA COVID-19 VACCINE [Interacting]
     Active Substance: AZD-1222
     Indication: Product used for unknown indication
     Route: 030

REACTIONS (5)
  - Drug interaction [Recovered/Resolved with Sequelae]
  - Fibromyalgia [Unknown]
  - Pain [Recovered/Resolved with Sequelae]
  - Suicidal ideation [Recovered/Resolved with Sequelae]
  - Depression [Unknown]

NARRATIVE: CASE EVENT DATE: 20210811
